FAERS Safety Report 21884272 (Version 2)
Quarter: 2023Q1

REPORT INFORMATION
  Report Type: Spontaneous
  Country: CZ (occurrence: CZ)
  Receive Date: 20230119
  Receipt Date: 20230123
  Transmission Date: 20230418
  Serious: Yes (Other)
  Sender: FDA-Public Use
  Company Number: CZ-GILEAD-2023-0612860

PATIENT
  Sex: Male

DRUGS (1)
  1. EPCLUSA [Suspect]
     Active Substance: SOFOSBUVIR\VELPATASVIR
     Indication: Chronic hepatitis C
     Dosage: 400MG/100MG TBL FLM 28
     Route: 065

REACTIONS (2)
  - Hepatitis C [Unknown]
  - Drug ineffective [Unknown]
